FAERS Safety Report 4503142-5 (Version None)
Quarter: 2004Q4

REPORT INFORMATION
  Report Type: 
  Country: None (occurrence: None)
  Receive Date: 20041117
  Receipt Date: 20040730
  Transmission Date: 20050328
  Serious: No
  Sender: FDA-Public Use
  Company Number: US-BRISTOL-MYERS SQUIBB COMPANY-12656989

PATIENT
  Age: 46 Year
  Sex: Male
  Weight: 148 kg

DRUGS (3)
  1. BLENOXANE [Suspect]
     Indication: TESTICULAR CANCER METASTATIC
     Dosage: 30 UNITS; CUMULATIVE 150 UNITS
     Route: 042
     Dates: start: 20040727, end: 20040727
  2. PLATINOL-AQ [Suspect]
     Indication: TESTICULAR CANCER METASTATIC
     Dosage: DAILY ON DAYS 1-5
     Route: 040
     Dates: start: 20040723, end: 20040723
  3. VEPESID [Suspect]
     Indication: TESTICULAR CANCER METASTATIC
     Route: 040
     Dates: start: 20040723, end: 20040723

REACTIONS (1)
  - RASH [None]
